FAERS Safety Report 11916758 (Version 1)
Quarter: 2016Q1

REPORT INFORMATION
  Report Type: Spontaneous
  Country: US (occurrence: US)
  Receive Date: 20160114
  Receipt Date: 20160114
  Transmission Date: 20160526
  Serious: Yes (Death, Other)
  Sender: FDA-Public Use
  Company Number: US-PFIZER INC-2016009471

PATIENT
  Age: 61 Year
  Sex: Male

DRUGS (2)
  1. AMIKACIN [Suspect]
     Active Substance: AMIKACIN
     Dosage: UNK
  2. CLINDAMYCIN PHOSPHATE. [Suspect]
     Active Substance: CLINDAMYCIN PHOSPHATE
     Dosage: UNK

REACTIONS (1)
  - Wound infection [Fatal]

NARRATIVE: CASE EVENT DATE: 198405
